FAERS Safety Report 22298726 (Version 1)
Quarter: 2023Q2

REPORT INFORMATION
  Report Type: Spontaneous
  Country: KR (occurrence: KR)
  Receive Date: 20230509
  Receipt Date: 20230509
  Transmission Date: 20230722
  Serious: Yes (Hospitalization, Other)
  Sender: FDA-Public Use
  Company Number: KR-GLAXOSMITHKLINE-KR2023APC064624

PATIENT

DRUGS (6)
  1. SERETIDE [Suspect]
     Active Substance: FLUTICASONE PROPIONATE\SALMETEROL XINAFOATE
     Indication: Asthma
     Dosage: 1 DF, BID USED IT FOR
  2. VENTOLIN [Suspect]
     Active Substance: ALBUTEROL SULFATE
     Indication: Asthma
  3. SINGULAIR [Concomitant]
     Active Substance: MONTELUKAST SODIUM
     Indication: Product used for unknown indication
     Dosage: UNK
  4. CLOVEIN [Concomitant]
     Indication: Product used for unknown indication
     Dosage: UNK
  5. ATORVA TABLET [Concomitant]
     Indication: Product used for unknown indication
     Dosage: UNK
  6. HARNAL [Concomitant]
     Active Substance: TAMSULOSIN HYDROCHLORIDE
     Indication: Product used for unknown indication
     Dosage: UNK

REACTIONS (20)
  - Cardiac arrest [Unknown]
  - Arrhythmia [Unknown]
  - Overdose [Unknown]
  - Polyuria [Recovering/Resolving]
  - Oliguria [Recovering/Resolving]
  - Bladder outlet obstruction [Unknown]
  - Vesicoureteric reflux [Unknown]
  - Renal disorder [Unknown]
  - Dialysis [Unknown]
  - Lung disorder [Unknown]
  - Dyspnoea [Unknown]
  - Renal transplant [Unknown]
  - Angioedema [Unknown]
  - Tooth disorder [Unknown]
  - Dental implantation [Unknown]
  - Oedema peripheral [Unknown]
  - Peripheral swelling [Unknown]
  - Vomiting [Unknown]
  - Diarrhoea [Unknown]
  - Abdominal pain [Unknown]
